FAERS Safety Report 9752517 (Version 1)
Quarter: 2013Q4

REPORT INFORMATION
  Report Type: Spontaneous
  Country: MY (occurrence: MY)
  Receive Date: 20131213
  Receipt Date: 20131213
  Transmission Date: 20140711
  Serious: Yes (Other)
  Sender: FDA-Public Use
  Company Number: MY-SA-2013SA126700

PATIENT
  Age: 53 Year
  Sex: 0

DRUGS (7)
  1. APROVEL [Suspect]
     Indication: HYPERTENSION
     Route: 048
  2. ASPIRIN [Concomitant]
  3. HYDROCHLOROTHIAZIDE [Concomitant]
  4. SIMVASTATIN [Concomitant]
  5. BISOPROLOL [Concomitant]
  6. ISOSORBIDE MONONITRATE [Concomitant]
  7. AMLODIPINE [Concomitant]

REACTIONS (6)
  - Dermatitis bullous [Not Recovered/Not Resolved]
  - Tremor [Not Recovered/Not Resolved]
  - Pyrexia [Not Recovered/Not Resolved]
  - Blister [Not Recovered/Not Resolved]
  - Cough [Not Recovered/Not Resolved]
  - Face oedema [Not Recovered/Not Resolved]
